FAERS Safety Report 11844649 (Version 1)
Quarter: 2015Q4

REPORT INFORMATION
  Report Type: Spontaneous
  Country: US (occurrence: None)
  Receive Date: 20151216
  Receipt Date: 20151216
  Transmission Date: 20160305
  Serious: Yes (Other)
  Sender: FDA-Public Use
  Company Number: None

PATIENT
  Sex: Female
  Weight: 78.92 kg

DRUGS (1)
  1. VENLAFAXINE ER [Suspect]
     Active Substance: VENLAFAXINE HYDROCHLORIDE
     Indication: DEPRESSION
     Dosage: 22MG ER, T QD, PO
     Route: 048
     Dates: start: 2011

REACTIONS (5)
  - Drug ineffective [None]
  - Product substitution issue [None]
  - Condition aggravated [None]
  - Anxiety [None]
  - Stress [None]

NARRATIVE: CASE EVENT DATE: 2015
